FAERS Safety Report 4882302-8 (Version None)
Quarter: 2006Q1

REPORT INFORMATION
  Report Type: 
  Country: None (occurrence: None)
  Receive Date: 20060117
  Receipt Date: 20060103
  Transmission Date: 20060701
  Serious: Yes (Hospitalization)
  Sender: FDA-Public Use
  Company Number: MY-BOEHRINGER INGELHEIM PHARMACEUTICALS, INC.-2006-BP-00085SG

PATIENT
  Sex: Male

DRUGS (2)
  1. TIOTROPIUM INH. POWDER [Suspect]
  2. COMBIVENT [Concomitant]

REACTIONS (2)
  - BLADDER NECK OBSTRUCTION [None]
  - URINARY RETENTION [None]
